FAERS Safety Report 6006857-5 (Version None)
Quarter: 2008Q4

REPORT INFORMATION
  Report Type: 
  Country: None (occurrence: None)
  Receive Date: 20081217
  Receipt Date: 20071107
  Transmission Date: 20090506
  Serious: No
  Sender: FDA-Public Use
  Company Number: US-ASTRAZENECA-2007UW25877

PATIENT
  Age: 61 Year
  Sex: Female
  Weight: 64.4 kg

DRUGS (7)
  1. CRESTOR [Suspect]
     Route: 048
     Dates: start: 20061101
  2. FLU SHOT [Concomitant]
     Dates: start: 20071001
  3. METFORMIN HCL [Concomitant]
  4. BROMOCRIPTINE MESYLATE [Concomitant]
  5. ZIAC [Concomitant]
  6. TRAMADOL HCL [Concomitant]
     Indication: ARTHRITIS
  7. TRAMADOL HCL [Concomitant]
     Indication: MYALGIA

REACTIONS (3)
  - ARTHRALGIA [None]
  - MYALGIA [None]
  - PYREXIA [None]
